FAERS Safety Report 14308841 (Version 1)
Quarter: 2017Q4

REPORT INFORMATION
  Report Type: Spontaneous
  Country: BR (occurrence: BR)
  Receive Date: 20171220
  Receipt Date: 20171220
  Transmission Date: 20180321
  Serious: Yes (Other)
  Sender: FDA-Public Use
  Company Number: BR-VIIV HEALTHCARE LIMITED-BR2017GSK196690

PATIENT
  Sex: Female

DRUGS (1)
  1. ZIDOVUDINE. [Suspect]
     Active Substance: ZIDOVUDINE
     Indication: PROPHYLAXIS AGAINST HIV INFECTION
     Route: 064

REACTIONS (13)
  - Craniofacial deformity [Unknown]
  - Microphthalmos [Unknown]
  - Cerebral calcification [Unknown]
  - Optic atrophy [Unknown]
  - Retinal pigmentation [Unknown]
  - Foetal exposure during pregnancy [Unknown]
  - Hydrocephalus [Unknown]
  - Small for dates baby [Unknown]
  - Extremity contracture [Unknown]
  - Knee deformity [Unknown]
  - Atrial septal defect [Unknown]
  - Calcinosis [Unknown]
  - Retinal degeneration [Unknown]
